FAERS Safety Report 15290303 (Version 2)
Quarter: 2018Q4

REPORT INFORMATION
  Report Type: Spontaneous
  Country: US (occurrence: US)
  Receive Date: 20180817
  Receipt Date: 20181130
  Transmission Date: 20190204
  Serious: Yes (Other)
  Sender: FDA-Public Use
  Company Number: US-SA-2018SA224933

PATIENT
  Age: 64 Year
  Sex: Female

DRUGS (1)
  1. ACT ADVANCED CARE PLAQUE GUARD ANTIGINGIVITIS ANTIPLAQUE FROSTED MINT [Suspect]
     Active Substance: CETYLPYRIDINIUM CHLORIDE
     Dosage: UNK
     Dates: start: 20180809

REACTIONS (1)
  - Burn oral cavity [Unknown]
